FAERS Safety Report 10251085 (Version 1)
Quarter: 2014Q2

REPORT INFORMATION
  Report Type: Report from Study
  Country: BR (occurrence: BR)
  Receive Date: 20140620
  Receipt Date: 20140620
  Transmission Date: 20141212
  Serious: Yes (Hospitalization)
  Sender: FDA-Public Use
  Company Number: BR-ABBVIE-14P-020-1248038-00

PATIENT
  Age: 31 Year
  Sex: Female
  Weight: 55 kg

DRUGS (2)
  1. HUMIRA [Suspect]
     Indication: ANKYLOSING SPONDYLITIS
     Route: 058
     Dates: start: 2010
  2. IBUPROFEN [Concomitant]
     Indication: SPONDYLITIS
     Route: 048
     Dates: start: 2010

REACTIONS (2)
  - Neck pain [Recovering/Resolving]
  - Spinal disorder [Recovering/Resolving]
